FAERS Safety Report 8397085 (Version 3)
Quarter: 2012Q4

REPORT INFORMATION
  Report Type: 
  Country: US (occurrence: US)
  Receive Date: 20120209
  Receipt Date: 20121205
  Transmission Date: 20130627
  Serious: Yes (Death, Hospitalization, Other)
  Sender: FDA-Public Use
  Company Number: US-PFIZER INC-2012032127

PATIENT
  Age: 68 Year
  Sex: Male

DRUGS (2)
  1. REVATIO [Suspect]
     Indication: PULMONARY HYPERTENSION
     Dosage: 20 mg, 3x/day
     Route: 048
     Dates: start: 2010
  2. BUMEX [Suspect]
     Indication: HEART FAILURE
     Dosage: 1 mg, 2x/day
     Route: 048
     Dates: start: 2010

REACTIONS (3)
  - Death [Fatal]
  - Dehydration [Unknown]
  - Orthostatic hypotension [Recovered/Resolved]
